FAERS Safety Report 5321367-6 (Version None)
Quarter: 2007Q2

REPORT INFORMATION
  Report Type: 
  Country: None (occurrence: None)
  Receive Date: 20070507
  Receipt Date: 20070507
  Transmission Date: 20071010
  Serious: Yes (Hospitalization)
  Sender: FDA-Public Use
  Company Number: None

PATIENT
  Age: 67 Year
  Sex: Male

DRUGS (2)
  1. NAPROXEN [Suspect]
     Indication: OSTEOARTHRITIS
     Dosage: 500GM BID PO
     Route: 048
     Dates: start: 20041027, end: 20061129
  2. COCAINE [Suspect]
     Dates: start: 20061115, end: 20061115

REACTIONS (2)
  - DRUG ABUSER [None]
  - RENAL FAILURE ACUTE [None]
